FAERS Safety Report 16045842 (Version 1)
Quarter: 2019Q1

REPORT INFORMATION
  Report Type: Report from Study
  Country: NL (occurrence: NL)
  Receive Date: 20190307
  Receipt Date: 20190307
  Transmission Date: 20190418
  Serious: Yes (Other)
  Sender: FDA-Public Use
  Company Number: NL-TOLMAR, INC.-2019NL001482

PATIENT

DRUGS (1)
  1. ELIGARD [Suspect]
     Active Substance: LEUPROLIDE ACETATE
     Indication: PROSTATE CANCER
     Dosage: 22.5 MG, ONCE IN 3 MONTHS
     Route: 058

REACTIONS (2)
  - Cardiac valve disease [Unknown]
  - Adverse event [Unknown]

NARRATIVE: CASE EVENT DATE: 20190105
